FAERS Safety Report 9683633 (Version 1)
Quarter: 2013Q4

REPORT INFORMATION
  Report Type: Spontaneous
  Country: EC (occurrence: EC)
  Receive Date: 20131112
  Receipt Date: 20131112
  Transmission Date: 20140711
  Serious: Yes (Hospitalization)
  Sender: FDA-Public Use
  Company Number: EC-PFIZER INC-2013319389

PATIENT
  Sex: Male

DRUGS (1)
  1. SUTENT [Suspect]
     Indication: NEUROENDOCRINE CARCINOMA
     Dosage: 50 MG, UNK
     Route: 048

REACTIONS (3)
  - Extrasystoles [Recovered/Resolved]
  - Tachycardia [Recovered/Resolved]
  - Cardiac fibrillation [Recovered/Resolved]
